FAERS Safety Report 12348029 (Version 2)
Quarter: 2016Q3

REPORT INFORMATION
  Report Type: Spontaneous
  Country: US (occurrence: US)
  Receive Date: 20160509
  Receipt Date: 20160809
  Transmission Date: 20161109
  Serious: Yes (Hospitalization)
  Sender: FDA-Public Use
  Company Number: US-JNJFOC-20160502660

PATIENT
  Age: 62 Year
  Sex: Female

DRUGS (2)
  1. XARELTO [Suspect]
     Active Substance: RIVAROXABAN
     Indication: CEREBROVASCULAR ACCIDENT PROPHYLAXIS
     Dosage: VARYING DOSES OF 10-20MG
     Route: 048
     Dates: start: 20130201, end: 20140812
  2. XARELTO [Suspect]
     Active Substance: RIVAROXABAN
     Indication: ATRIAL FIBRILLATION
     Dosage: VARYING DOSES OF 10-20MG
     Route: 048
     Dates: start: 20130201, end: 20140812

REACTIONS (1)
  - Culture stool positive [Recovering/Resolving]

NARRATIVE: CASE EVENT DATE: 20140502
